FAERS Safety Report 9397005 (Version 1)
Quarter: 2013Q3

REPORT INFORMATION
  Report Type: Spontaneous
  Country: US (occurrence: None)
  Receive Date: 20130710
  Receipt Date: 20130710
  Transmission Date: 20140515
  Serious: Yes (Hospitalization)
  Sender: FDA-Public Use
  Company Number: None

PATIENT
  Age: 11 Month
  Sex: Male
  Weight: 8 kg

DRUGS (1)
  1. ACETAMINOPHEN [Suspect]
     Indication: PYREXIA
     Dates: start: 20130708, end: 20130708

REACTIONS (4)
  - Musculoskeletal stiffness [None]
  - Tremor [None]
  - Incorrect dose administered [None]
  - Underdose [None]
